FAERS Safety Report 11310870 (Version 2)
Quarter: 2015Q3

REPORT INFORMATION
  Report Type: Spontaneous
  Country: US (occurrence: US)
  Receive Date: 20150726
  Receipt Date: 20150904
  Transmission Date: 20151125
  Serious: Yes (Hospitalization)
  Sender: FDA-Public Use
  Company Number: US-B.I. PHARMACEUTICALS,INC./RIDGEFIELD-2015-BI-39603BP

PATIENT
  Age: 82 Year
  Sex: Female
  Weight: 59 kg

DRUGS (2)
  1. COMBIVENT [Suspect]
     Active Substance: ALBUTEROL SULFATE\IPRATROPIUM BROMIDE
     Indication: CHRONIC OBSTRUCTIVE PULMONARY DISEASE
     Dosage: STRENGTH: 20 MCG / 100 MCG; DAILY DOSE: 20 MCG / 100 MCG PRN
     Route: 055
     Dates: start: 201304
  2. ATIVAN [Concomitant]
     Active Substance: LORAZEPAM
     Indication: ANXIETY
     Dosage: 15 MG
     Route: 048

REACTIONS (10)
  - Head injury [Recovered/Resolved]
  - Product quality issue [Unknown]
  - Heart rate increased [Recovered/Resolved]
  - Incorrect dose administered [Unknown]
  - Loss of consciousness [Recovered/Resolved]
  - Fall [Recovered/Resolved]
  - Memory impairment [Not Recovered/Not Resolved]
  - Cerebral haemorrhage [Recovered/Resolved]
  - Laceration [Recovered/Resolved]
  - Dyspnoea [Recovered/Resolved]

NARRATIVE: CASE EVENT DATE: 2015
